FAERS Safety Report 4458480-1 (Version None)
Quarter: 2004Q3

REPORT INFORMATION
  Report Type: 
  Country: None (occurrence: None)
  Receive Date: 20040922
  Receipt Date: 20040402
  Transmission Date: 20050211
  Serious: Yes (Other)
  Sender: FDA-Public Use
  Company Number: US-SHR-04-023586

PATIENT
  Age: 23 Year
  Sex: Female

DRUGS (5)
  1. BETASERON [Suspect]
     Indication: MULTIPLE SCLEROSIS
     Dosage: SUBCUTANEOUS
     Route: 058
     Dates: start: 20020501, end: 20040301
  2. SOLU-MEDROL [Suspect]
     Indication: URTICARIA
     Dosage: 1 DOSE, INTRAVENOUS
     Route: 042
     Dates: start: 20040314, end: 20040314
  3. CLARINEX               /USA/(DESLORATADINE) TABLET [Concomitant]
  4. VITAMIN C [Concomitant]
  5. FERROUS SULFATE TAB [Concomitant]

REACTIONS (5)
  - ANAPHYLACTIC REACTION [None]
  - ANGIONEUROTIC OEDEMA [None]
  - BRONCHOSPASM [None]
  - PRURITUS [None]
  - URTICARIA [None]
